FAERS Safety Report 24707694 (Version 1)
Quarter: 2024Q4

REPORT INFORMATION
  Report Type: Spontaneous
  Country: ES (occurrence: ES)
  Receive Date: 20241206
  Receipt Date: 20241206
  Transmission Date: 20250115
  Serious: Yes (Other)
  Sender: MEITHEAL PHARMACEUTICALS
  Company Number: ES-MEITHEAL-2024MPLIT00421

PATIENT
  Age: 60 Year
  Sex: Female

DRUGS (12)
  1. TIGECYCLINE [Suspect]
     Active Substance: TIGECYCLINE
     Indication: Anophthalmos
     Route: 042
  2. CEFTAZIDIME [Concomitant]
     Active Substance: CEFTAZIDIME
     Route: 065
  3. DEXAMETHASONE [Concomitant]
     Active Substance: DEXAMETHASONE
     Route: 065
  4. TOBRAMYCIN [Concomitant]
     Active Substance: TOBRAMYCIN\TOBRAMYCIN SULFATE
     Route: 065
  5. TRIAMCINOLONE [Concomitant]
     Active Substance: TRIAMCINOLONE
     Route: 065
  6. AMIKACIN [Concomitant]
     Active Substance: AMIKACIN
     Dosage: 750 MG
     Route: 042
  7. IMIPENEM [Concomitant]
     Active Substance: IMIPENEM
     Route: 042
  8. AZITHROMYCIN [Concomitant]
     Active Substance: AZITHROMYCIN
     Route: 048
  9. DOXYCYCLINE [Concomitant]
     Active Substance: DOXYCYCLINE
     Route: 065
  10. AMOXICILLIN\CLAVULANIC ACID [Concomitant]
     Active Substance: AMOXICILLIN\CLAVULANIC ACID
     Route: 065
  11. COTRIMOXAZOLE [Concomitant]
     Active Substance: SULFAMETHOXAZOLE\TRIMETHOPRIM
     Route: 065
  12. LEVOFLOXACIN [Concomitant]
     Active Substance: LEVOFLOXACIN
     Route: 065

REACTIONS (1)
  - Hepatitis [Recovering/Resolving]
